FAERS Safety Report 4471470-8 (Version None)
Quarter: 2004Q4

REPORT INFORMATION
  Report Type: 
  Country: None (occurrence: None)
  Receive Date: 20041007
  Receipt Date: 20041007
  Transmission Date: 20050328
  Serious: Yes (Hospitalization, Disabling, Other)
  Sender: FDA-Public Use
  Company Number: None

PATIENT
  Age: 47 Year
  Sex: Female
  Weight: 56.6996 kg

DRUGS (2)
  1. AREDIA [Suspect]
     Indication: BREAST CANCER METASTATIC
     Dosage: IV
     Route: 042
  2. TAMOXIFEN CITRATE [Concomitant]

REACTIONS (7)
  - ACTINOMYCOSIS [None]
  - BACTERIAL CULTURE POSITIVE [None]
  - JOINT SWELLING [None]
  - OSTEOMYELITIS [None]
  - OSTEONECROSIS [None]
  - PAIN IN JAW [None]
  - TOOTH LOSS [None]
